FAERS Safety Report 4611509-X (Version None)
Quarter: 2005Q2

REPORT INFORMATION
  Report Type: 
  Country: None (occurrence: None)
  Receive Date: 20050311
  Receipt Date: 20041101
  Transmission Date: 20051028
  Serious: No
  Sender: FDA-Public Use
  Company Number: 2004-BP-10402BP

PATIENT
  Age: 76 Year
  Sex: Female
  Weight: 66.2 kg

DRUGS (2)
  1. SPIRIVA [Suspect]
     Indication: CHRONIC OBSTRUCTIVE PULMONARY DISEASE
     Dosage: 18 MCG (18 MCG, QD), IH
     Route: 055
     Dates: start: 20040903, end: 20040907
  2. SPIRIVA [Suspect]
     Indication: CHRONIC OBSTRUCTIVE PULMONARY DISEASE
     Dosage: 18 MCG (18 MCG, QD), IH
     Route: 055
     Dates: start: 20040903, end: 20041001

REACTIONS (2)
  - RASH PRURITIC [None]
  - URTICARIA [None]
